FAERS Safety Report 16188291 (Version 2)
Quarter: 2019Q2

REPORT INFORMATION
  Report Type: Report from Study
  Country: IT (occurrence: IT)
  Receive Date: 20190412
  Receipt Date: 20190429
  Transmission Date: 20190711
  Serious: Yes (Death, Hospitalization)
  Sender: FDA-Public Use
  Company Number: IT-TEVA-2019-IT-1035146

PATIENT
  Age: 72 Year
  Sex: Male

DRUGS (5)
  1. VINORELBINE [Suspect]
     Active Substance: VINORELBINE\VINORELBINE TARTRATE
     Indication: LUNG SQUAMOUS CELL CARCINOMA STAGE II
     Dosage: FOUR CYCLES
     Route: 065
     Dates: start: 201406
  2. CARBOPLATIN. [Suspect]
     Active Substance: CARBOPLATIN
     Indication: LUNG SQUAMOUS CELL CARCINOMA STAGE II
     Dosage: FOUR CYCLES
     Route: 065
     Dates: start: 201406
  3. NIVOLUMAB [Suspect]
     Active Substance: NIVOLUMAB
     Indication: LUNG SQUAMOUS CELL CARCINOMA STAGE II
     Route: 065
     Dates: start: 201506, end: 2016
  4. TAXOTERE [Suspect]
     Active Substance: DOCETAXEL
     Indication: LUNG SQUAMOUS CELL CARCINOMA STAGE II
     Dosage: THIRD-LINE CHEMOTHERAPY
     Route: 065
     Dates: start: 201605
  5. CARBOPLATIN. [Suspect]
     Active Substance: CARBOPLATIN
     Dosage: THIRD-LINE THERAPY
     Route: 065
     Dates: start: 201605

REACTIONS (1)
  - Interstitial lung disease [Fatal]

NARRATIVE: CASE EVENT DATE: 2016
